FAERS Safety Report 18986398 (Version 1)
Quarter: 2021Q1

REPORT INFORMATION
  Report Type: Spontaneous
  Country: US (occurrence: US)
  Receive Date: 20210309
  Receipt Date: 20210309
  Transmission Date: 20210420
  Serious: Yes (Other)
  Sender: FDA-Public Use
  Company Number: US-MYLANLABS-2021M1014244

PATIENT
  Age: 67 Year
  Sex: Female

DRUGS (18)
  1. QUETIAPINE. [Suspect]
     Active Substance: QUETIAPINE
     Dosage: 200 MILLIGRAM
     Route: 065
     Dates: start: 201112
  2. TETRABENAZINE. [Suspect]
     Active Substance: TETRABENAZINE
     Dosage: 12.5 MILLIGRAM, TID
     Route: 065
     Dates: start: 201112
  3. SINEMET [Suspect]
     Active Substance: CARBIDOPA\LEVODOPA
     Indication: PARKINSONISM
     Dosage: UNK
     Route: 065
     Dates: start: 2015
  4. CITALOPRAM [Concomitant]
     Active Substance: CITALOPRAM HYDROBROMIDE
     Indication: PRODUCT USED FOR UNKNOWN INDICATION
     Dosage: UNK
     Route: 065
     Dates: start: 1980, end: 2010
  5. TETRABENAZINE. [Suspect]
     Active Substance: TETRABENAZINE
     Dosage: 25 MILLIGRAM, TID
     Route: 065
     Dates: start: 2015
  6. PROPRANOLOL [Suspect]
     Active Substance: PROPRANOLOL HYDROCHLORIDE
     Dosage: UP TO 20MG THRICE DAILY
     Route: 065
     Dates: start: 2015
  7. PRAMIPEXOLE. [Suspect]
     Active Substance: PRAMIPEXOLE
     Indication: PARKINSONISM
     Dosage: UNK
     Route: 065
     Dates: start: 2015
  8. AMANTADINE. [Suspect]
     Active Substance: AMANTADINE HYDROCHLORIDE
     Indication: PARKINSONISM
     Dosage: UNK
     Route: 065
     Dates: start: 2015
  9. LIDOCAINE. [Suspect]
     Active Substance: LIDOCAINE
     Indication: DYSKINESIA
     Dosage: UNK
     Route: 048
     Dates: start: 2008
  10. PROPRANOLOL [Suspect]
     Active Substance: PROPRANOLOL HYDROCHLORIDE
     Indication: PARKINSONISM
     Dosage: 10 MILLIGRAM, BID
     Route: 065
  11. TETRABENAZINE. [Suspect]
     Active Substance: TETRABENAZINE
     Indication: DYSKINESIA
     Dosage: 12.5 MILLIGRAM, BID
     Route: 065
     Dates: start: 201106
  12. THIORIDAZINE [Suspect]
     Active Substance: THIORIDAZINE
     Indication: PRODUCT USED FOR UNKNOWN INDICATION
     Dosage: UNK
     Route: 065
     Dates: start: 1980, end: 2010
  13. QUETIAPINE. [Suspect]
     Active Substance: QUETIAPINE
     Dosage: 100 MILLIGRAM
     Route: 065
  14. TRAZODONE [Concomitant]
     Active Substance: TRAZODONE HYDROCHLORIDE
     Indication: DEPRESSION
     Dosage: 100 MILLIGRAM
     Route: 065
     Dates: start: 201112
  15. QUETIAPINE. [Suspect]
     Active Substance: QUETIAPINE
     Indication: DYSKINESIA
     Dosage: 50 MILLIGRAM
     Route: 065
     Dates: start: 201101
  16. BENZATROPINE [Suspect]
     Active Substance: BENZTROPINE
     Indication: DYSKINESIA
     Dosage: UNK
     Route: 065
     Dates: start: 2008
  17. FLUOXETINE [Concomitant]
     Active Substance: FLUOXETINE HYDROCHLORIDE
     Indication: DEPRESSION
     Dosage: 50 MILLIGRAM
     Route: 065
     Dates: start: 201112
  18. PRIMIDONE. [Suspect]
     Active Substance: PRIMIDONE
     Indication: PARKINSONISM
     Dosage: UNK
     Route: 065
     Dates: start: 2015

REACTIONS (5)
  - Parkinsonism [Recovering/Resolving]
  - Drug ineffective [Unknown]
  - Dyskinesia [Recovering/Resolving]
  - Fall [Unknown]
  - Hip fracture [Unknown]

NARRATIVE: CASE EVENT DATE: 2008
